FAERS Safety Report 5189674-8 (Version None)
Quarter: 2006Q4

REPORT INFORMATION
  Report Type: 
  Country: None (occurrence: None)
  Receive Date: 20061221
  Receipt Date: 20050616
  Transmission Date: 20070319
  Serious: No
  Sender: FDA-Public Use
  Company Number: US-AMGEN-US138911

PATIENT
  Sex: Female

DRUGS (2)
  1. ENBREL [Suspect]
     Indication: RHEUMATOID ARTHRITIS
     Route: 058
     Dates: start: 20050513
  2. ENBREL [Suspect]
     Route: 065
     Dates: start: 20050101

REACTIONS (4)
  - DIARRHOEA [None]
  - INJECTION SITE RASH [None]
  - RASH [None]
  - RASH GENERALISED [None]
